FAERS Safety Report 6306299-9 (Version None)
Quarter: 2009Q3

REPORT INFORMATION
  Report Type: 
  Country: None (occurrence: None)
  Receive Date: 20090812
  Receipt Date: 20090730
  Transmission Date: 20100115
  Serious: Yes (Hospitalization)
  Sender: FDA-Public Use
  Company Number: FR-AVENTIS-200912862FR

PATIENT
  Age: 35 Year
  Sex: Female
  Weight: 58 kg

DRUGS (5)
  1. NASACORT [Suspect]
     Indication: RHINITIS
     Route: 055
  2. SERETIDE [Suspect]
     Indication: ASTHMA
     Route: 055
  3. EUPHYTOSE [Concomitant]
     Indication: ANXIETY
     Route: 048
  4. AERIUS                             /01398501/ [Concomitant]
     Indication: DRUG USE FOR UNKNOWN INDICATION
     Route: 048
  5. HOMEOPATIC PREPARATION [Concomitant]
     Indication: DRUG USE FOR UNKNOWN INDICATION

REACTIONS (5)
  - ASTHENIA [None]
  - DIARRHOEA [None]
  - HYPOKALAEMIA [None]
  - HYPOTENSION [None]
  - WEIGHT DECREASED [None]
